FAERS Safety Report 5357638-7 (Version None)
Quarter: 2007Q2

REPORT INFORMATION
  Report Type: 
  Country: None (occurrence: None)
  Receive Date: 20070614
  Receipt Date: 20070531
  Transmission Date: 20071010
  Serious: Yes (Other)
  Sender: FDA-Public Use
  Company Number: US-SHR-US-2007-014933

PATIENT
  Age: 61 Year
  Sex: Female
  Weight: 43.991 kg

DRUGS (49)
  1. BETASERON [Suspect]
     Dosage: 8 MIU, EVERY 2D
     Route: 058
     Dates: start: 20040515
  2. CARDIZEM [Concomitant]
     Dosage: 240 MG/D, UNK
     Route: 048
     Dates: start: 20061002
  3. DOXEPIN HCL [Concomitant]
     Dosage: 25 MG, 3X/DAY,NIGHTLY
     Route: 048
     Dates: start: 20061002
  4. MECLIZINE [Concomitant]
     Dosage: 25 MG, AS REQ'D
     Route: 048
     Dates: start: 20061002
  5. NITROGLYCERIN [Concomitant]
     Dosage: .6 MG, AS REQ'D
     Route: 061
     Dates: start: 20061002
  6. NITROSTAT [Concomitant]
     Dosage: .8 MG, 1TAB, AS REQ'D
     Route: 048
     Dates: start: 20061002
  7. OXYGEN [Concomitant]
     Dosage: 2.5 L/MIN, CONT
     Route: 045
     Dates: start: 20061002
  8. POTASSIUM ACETATE [Concomitant]
     Dosage: 10 MEQ, 2TAB, EVERY 2D
     Route: 048
     Dates: start: 20061002
  9. PRILOSEC [Concomitant]
     Dosage: 20 MG, 1TAB, 1X/DAY
     Route: 048
     Dates: start: 20061002
  10. SINGULAIR [Concomitant]
     Dosage: 10 MG, 1TAB, BED T.
     Route: 048
     Dates: start: 20061002
  11. ROBINUL [Concomitant]
     Dosage: 1 MG, 1TAB, 2X/DAY
     Route: 048
     Dates: start: 20061002
  12. MYLANTA-II                              /USA/ [Concomitant]
     Dosage: 1X/DAY, AS REQ'D
     Route: 050
     Dates: start: 20061002
  13. ATENOLOL [Concomitant]
     Dosage: 100 MG, 1TAB, 1X/DAY
     Route: 048
     Dates: start: 20061002
  14. ZOFRAN [Concomitant]
     Dosage: 8 MG, 1TAB, AS REQ'D
     Route: 048
     Dates: start: 20061002
  15. STOOL SOFTENER [Concomitant]
     Dosage: 1 TAB(S), BED T.
     Route: 048
     Dates: start: 20061002
  16. ZOLOFT [Concomitant]
     Dosage: 100 MG, 1TAB, BED T.
     Route: 048
     Dates: start: 20061002
  17. RELAFEN [Concomitant]
     Dosage: 750 MG, 1TAB, 1X/DAY
     Route: 048
     Dates: start: 20061002
  18. PROGESTERONE [Concomitant]
     Dosage: 100 MG, 1X/DAY
     Route: 048
     Dates: start: 20061002
  19. MEXITIL [Concomitant]
     Dosage: 150 MG 2, EVERY 8H
     Route: 048
     Dates: start: 20061002
  20. DURAGESIC-100 [Concomitant]
     Dosage: 100 A?G/H, CONT
     Route: 061
     Dates: start: 20061002
  21. FLURAZEPAM HCL [Concomitant]
     Dosage: 15 MG, 1TAB, BED T.
     Route: 048
     Dates: start: 20061002
  22. COMBIVENT [Concomitant]
     Dosage: 2 PUFF, 4X/DAY
     Route: 055
     Dates: start: 20061002
  23. MORPHINE [Concomitant]
     Dosage: 7MG/0.292MG HOURLY, DAILY
     Dates: start: 20061002
  24. VITAMIN B-12 [Concomitant]
     Dosage: 1 ML, 1X/MONTH
     Route: 050
     Dates: start: 20061013
  25. SAF-GEL [Concomitant]
     Route: 061
     Dates: start: 20061020
  26. FORADIL [Concomitant]
     Dosage: 12 MG, 2X/DAY
     Route: 055
     Dates: start: 20061116
  27. SOMA [Concomitant]
     Dosage: 350 MG, 2TAB, 6X/DAY
     Route: 048
     Dates: start: 20061130
  28. HYDROCORTISONE [Concomitant]
     Dosage: UNK, AS REQ'D
     Route: 061
     Dates: start: 20070118
  29. PANAFIL [Concomitant]
     Dosage: UNK, AS REQ'D
     Route: 061
     Dates: start: 20070118
  30. BENADRYL ^WARNER-LAMBERT^               /USA/ [Concomitant]
     Dosage: 25 MG, EVERY 6H,PRN
     Route: 048
     Dates: start: 20070122
  31. BENADRYL ^WARNER-LAMBERT^               /USA/ [Concomitant]
     Dosage: 25 MG, EVERY 6H, PRN
     Route: 061
  32. HYDROXYZINE HYDROCHLORIDE [Concomitant]
     Dosage: 50 MG, EVERY 6H,PRN
     Route: 048
     Dates: start: 20070129
  33. NEOSPORIN [Concomitant]
     Indication: RASH
     Dosage: UNK, AS REQ'D
     Route: 061
     Dates: start: 20070214
  34. PREMARIN [Concomitant]
     Dosage: 6.25 UNK, 1X/DAY
     Route: 048
     Dates: start: 20070214
  35. DESONIDE [Concomitant]
     Indication: RASH
     Dosage: .05 %, AS REQ'D
     Route: 061
     Dates: start: 20070214
  36. CALMOSEPTINE [Concomitant]
     Indication: RASH
     Dosage: UNK, AS REQ'D
     Route: 061
     Dates: start: 20070214
  37. SARNA [Concomitant]
     Indication: RASH
     Dosage: UNK, AS REQ'D
     Route: 061
     Dates: start: 20070214
  38. CARRASYN [Concomitant]
     Dosage: UNK, AS REQ'D
     Route: 061
     Dates: start: 20070214
  39. LASIX [Concomitant]
     Dosage: 20 MG, AS REQ'D
     Route: 048
     Dates: start: 20070228
  40. ALBUTEROL [Concomitant]
     Dosage: UNK, EVERY 4H
     Route: 055
     Dates: start: 20070314
  41. COUMADIN [Concomitant]
     Dosage: 1 MG/D, UNK
     Route: 048
     Dates: start: 20070329
  42. MIRALAX [Concomitant]
     Dosage: 17 G,1-2X/DAY
     Route: 048
     Dates: start: 20070329
  43. COLACE [Concomitant]
     Indication: CONSTIPATION
     Dosage: 100 MG, AS REQ'D
     Route: 048
     Dates: start: 20070405
  44. VANCOMYCIN HCL [Concomitant]
     Dosage: UNK, EVERY 12H
     Route: 042
     Dates: start: 20070515
  45. DILANTIN [Concomitant]
     Dosage: 300 MG, BED T.
     Route: 048
     Dates: start: 20070517
  46. ISORDIL [Concomitant]
     Dosage: 40 MG, 2X/DAY
     Route: 048
     Dates: start: 20070517
  47. PERCOCET [Concomitant]
     Dosage: 10 MG, 6X/DAY
     Route: 048
     Dates: start: 20070517
  48. PREDNISONE TAB [Concomitant]
     Route: 048
     Dates: start: 20070517
  49. PROMETHAZINE [Concomitant]
     Route: 048
     Dates: start: 20070517

REACTIONS (4)
  - LARYNGITIS [None]
  - MULTIPLE SCLEROSIS [None]
  - SPEECH DISORDER [None]
  - VISION BLURRED [None]
